FAERS Safety Report 10607300 (Version 1)
Quarter: 2014Q4

REPORT INFORMATION
  Report Type: Spontaneous
  Country: US (occurrence: None)
  Receive Date: 20141124
  Receipt Date: 20141124
  Transmission Date: 20150529
  Serious: Yes (Hospitalization)
  Sender: FDA-Public Use
  Company Number: None

PATIENT
  Age: 51 Year
  Sex: Female
  Weight: 78.7 kg

DRUGS (4)
  1. BACLOFEN. [Suspect]
     Active Substance: BACLOFEN
  2. TRAMADOL [Suspect]
     Active Substance: TRAMADOL
     Indication: LUPUS-LIKE SYNDROME
     Dosage: CHRONIC
     Route: 048
  3. PHENERGAN [Suspect]
     Active Substance: PROMETHAZINE HYDROCHLORIDE
     Indication: NAUSEA
     Dosage: CHRONIC
     Route: 048
  4. NEXIUM [Concomitant]
     Active Substance: ESOMEPRAZOLE MAGNESIUM

REACTIONS (3)
  - Respiratory failure [None]
  - Unresponsive to stimuli [None]
  - Metabolic encephalopathy [None]

NARRATIVE: CASE EVENT DATE: 20140407
